FAERS Safety Report 7292497-7 (Version None)
Quarter: 2011Q1

REPORT INFORMATION
  Report Type: 
  Country: None (occurrence: None)
  Receive Date: 20110215
  Receipt Date: 20110201
  Transmission Date: 20110831
  Serious: Yes (Hospitalization)
  Sender: FDA-Public Use
  Company Number: US-MYLANLABS-2011S1002399

PATIENT
  Age: 47 Year
  Sex: Female

DRUGS (3)
  1. RELACORE [Concomitant]
     Indication: WEIGHT DECREASED
     Route: 065
  2. IBUPROFEN [Suspect]
     Dosage: UP TO 3600 MG/DAY
     Route: 065
  3. CALCIUM CARBONATE [Suspect]
     Indication: DYSPEPSIA
     Dosage: UP TO 4500 MG/DAY
     Route: 048

REACTIONS (3)
  - GASTRIC DISORDER [None]
  - MILK-ALKALI SYNDROME [None]
  - RENAL FAILURE [None]
